FAERS Safety Report 10070029 (Version 1)
Quarter: 2014Q2

REPORT INFORMATION
  Report Type: Spontaneous
  Country: US (occurrence: None)
  Receive Date: 20140409
  Receipt Date: 20140409
  Transmission Date: 20141212
  Serious: Yes (Life-Threatening, Hospitalization)
  Sender: FDA-Public Use
  Company Number: None

PATIENT
  Age: 41 Year
  Sex: Female

DRUGS (2)
  1. OMNIPAQUE 300 [Suspect]
     Route: 042
     Dates: start: 20140407, end: 20140407
  2. OMNIPAQUE [Suspect]
     Route: 042
     Dates: start: 20140407, end: 20140407

REACTIONS (2)
  - Respiratory arrest [None]
  - Ventricular fibrillation [None]
